FAERS Safety Report 7553567-9 (Version None)
Quarter: 2011Q2

REPORT INFORMATION
  Report Type: 
  Country: None (occurrence: None)
  Receive Date: 20110614
  Receipt Date: 20110614
  Transmission Date: 20111010
  Serious: Yes (Other)
  Sender: FDA-Public Use
  Company Number: None

PATIENT
  Age: 44 Year
  Sex: Male
  Weight: 97.5234 kg

DRUGS (1)
  1. CIPROFLOXACIN [Suspect]
     Indication: SINUSITIS
     Dosage: QTY:20 1 EVERY 12 HOURS PO
     Route: 048
     Dates: start: 20110604, end: 20110611

REACTIONS (4)
  - PAIN IN EXTREMITY [None]
  - MYALGIA [None]
  - BURNING SENSATION [None]
  - MUSCLE SPASMS [None]
